FAERS Safety Report 6103639-0 (Version None)
Quarter: 2009Q1

REPORT INFORMATION
  Report Type: 
  Country: None (occurrence: None)
  Receive Date: 20090305
  Receipt Date: 20090226
  Transmission Date: 20090719
  Serious: Yes (Hospitalization)
  Sender: FDA-Public Use
  Company Number: US-ASTRAZENECA-2009UW05312

PATIENT
  Age: 65 Year
  Sex: Female
  Weight: 58.5 kg

DRUGS (13)
  1. NEXIUM [Suspect]
     Indication: GASTROOESOPHAGEAL REFLUX DISEASE
     Route: 048
     Dates: end: 20090101
  2. KLONOPIN [Concomitant]
     Route: 048
  3. PREVACID [Concomitant]
     Route: 048
  4. REGLAN [Concomitant]
     Route: 048
  5. NORVASC [Concomitant]
     Route: 048
  6. ATENOLOL [Concomitant]
     Route: 048
  7. SOMA [Concomitant]
     Route: 048
  8. PLAVIX [Concomitant]
     Route: 048
  9. LORTAB [Concomitant]
     Route: 048
  10. AMITRIPTYLINE HCL [Concomitant]
     Route: 048
  11. TRAZODONE HCL [Concomitant]
     Route: 048
  12. REQUIP [Concomitant]
     Route: 048
  13. ZOFRAN [Concomitant]
     Route: 048

REACTIONS (6)
  - CEREBROVASCULAR ACCIDENT [None]
  - DIARRHOEA [None]
  - ESCHERICHIA INFECTION [None]
  - FUNGAL INFECTION [None]
  - GASTROOESOPHAGEAL REFLUX DISEASE [None]
  - VOMITING [None]
